FAERS Safety Report 15602559 (Version 6)
Quarter: 2021Q1

REPORT INFORMATION
  Report Type: Spontaneous
  Country: US (occurrence: US)
  Receive Date: 20181109
  Receipt Date: 20210205
  Transmission Date: 20210419
  Serious: No
  Sender: FDA-Public Use
  Company Number: US-SA-2018SA306550

PATIENT
  Age: 73 Year
  Sex: Female

DRUGS (3)
  1. DUPIXENT [Suspect]
     Active Substance: DUPILUMAB
     Indication: DERMATITIS ALLERGIC
     Dosage: 600 MG, 1X
     Route: 058
     Dates: start: 201707, end: 201707
  2. MODERNA COVID?19 VACCINE [Concomitant]
     Active Substance: CX-024414
  3. DUPIXENT [Suspect]
     Active Substance: DUPILUMAB
     Dosage: 300 MG, QOW
     Route: 058
     Dates: start: 201707

REACTIONS (6)
  - Injection site rash [Unknown]
  - Rash macular [Unknown]
  - Hypersensitivity [Unknown]
  - Urticaria [Unknown]
  - Erythema [Unknown]
  - Product dose omission issue [Unknown]
